FAERS Safety Report 6684852-0 (Version None)
Quarter: 2010Q2

REPORT INFORMATION
  Report Type: 
  Country: None (occurrence: None)
  Receive Date: 20100416
  Receipt Date: 20100406
  Transmission Date: 20101027
  Serious: Yes (Hospitalization)
  Sender: FDA-Public Use
  Company Number: US-CELGENEUS-163-50794-10040407

PATIENT
  Age: 84 Year
  Sex: Female

DRUGS (2)
  1. VIDAZA [Suspect]
     Route: 058
     Dates: start: 20100202, end: 20100309
  2. GEMTUZUMAB [Suspect]
     Route: 051
     Dates: start: 20100202, end: 20100310

REACTIONS (1)
  - ARTERIAL THROMBOSIS [None]
